FAERS Safety Report 5879692-6 (Version None)
Quarter: 2008Q3

REPORT INFORMATION
  Report Type: 
  Country: None (occurrence: None)
  Receive Date: 20080912
  Receipt Date: 20080903
  Transmission Date: 20090109
  Serious: Yes (Other)
  Sender: FDA-Public Use
  Company Number: US-MERCK-0805USA03762

PATIENT
  Sex: Female

DRUGS (1)
  1. FOSAMAX [Suspect]
     Route: 048
     Dates: start: 20040101, end: 20060101

REACTIONS (12)
  - ANXIETY [None]
  - DEPRESSION [None]
  - DYSPHAGIA [None]
  - EMOTIONAL DISORDER [None]
  - HYPERTENSION [None]
  - MYOCARDIAL INFARCTION [None]
  - OSTEONECROSIS [None]
  - PERIODONTAL DISEASE [None]
  - RHEUMATOID ARTHRITIS [None]
  - TOOTH ABSCESS [None]
  - TOOTHACHE [None]
  - WEIGHT DECREASED [None]
